FAERS Safety Report 12153961 (Version 1)
Quarter: 2016Q1

REPORT INFORMATION
  Report Type: Spontaneous
  Country: GB (occurrence: GB)
  Receive Date: 20160307
  Receipt Date: 20160307
  Transmission Date: 20160526
  Serious: Yes (Other)
  Sender: FDA-Public Use
  Company Number: GB-ACCORD-038388

PATIENT
  Age: 59 Year
  Sex: Male
  Weight: 94 kg

DRUGS (22)
  1. METOPROLOL. [Concomitant]
     Active Substance: METOPROLOL
     Dates: start: 20151109
  2. BECLOMETASONE [Concomitant]
     Active Substance: BECLOMETHASONE DIPROPIONATE
     Dosage: 2 SPRAYS TWICE A DAY BOTH NOSTRILS FOR 2 WEEKS
     Route: 045
     Dates: start: 20151109
  3. CALCIPOTRIOL [Concomitant]
     Active Substance: CALCIPOTRIENE
     Indication: PSORIASIS
     Dosage: APPLY DAILY TO AFFECTED AREA (FOR PSORIASIS)
     Dates: start: 20151109
  4. DERMOL [Concomitant]
     Active Substance: BENZALKONIUM CHLORIDE\CHLORHEXIDINE HYDROCHLORIDE\ISOPROPYL MYRISTATE\PARAFFIN
     Dosage: USE FREELY
     Dates: start: 20151109
  5. DIPROBASE [Concomitant]
     Active Substance: CHLOROCRESOL
     Dosage: APPLY TO SKIN FREQUENTLY AND LIBERALLY
     Route: 061
     Dates: start: 20160118, end: 20160215
  6. FEXOFENADINE/FEXOFENADINE HYDROCHLORIDE [Concomitant]
     Dates: start: 20160219
  7. PARACETAMOL [Concomitant]
     Active Substance: ACETAMINOPHEN
     Dosage: TAKE TWO TABLETS FOUR-SIX HRLY AS REQUIRED
     Dates: start: 20151109
  8. CETIRIZINE [Concomitant]
     Active Substance: CETIRIZINE HYDROCHLORIDE
     Dates: start: 20151109, end: 20160219
  9. CHLORPHENAMINE/CHLORPHENAMINE MALEATE/CHLORPHENAMINE RESINATE/CHLORPHENAMINE TANNATE [Concomitant]
     Dosage: TAKE ONE EVERY 4-6 HRS
     Dates: start: 20160118, end: 20160119
  10. OMEPRAZOLE. [Concomitant]
     Active Substance: OMEPRAZOLE
     Dates: start: 20151109
  11. SALBUTAMOL [Concomitant]
     Active Substance: ALBUTEROL
     Route: 055
     Dates: start: 20151109
  12. SALMETEROL [Concomitant]
     Active Substance: SALMETEROL
     Route: 055
     Dates: start: 20151109
  13. TRAMADOL. [Concomitant]
     Active Substance: TRAMADOL
     Dosage: TAKE 1 OR 2 AS DIRECTED UP TO QDS
     Dates: start: 20160205
  14. CAPASAL [Concomitant]
     Dosage: USE TWICE WEEKLY AND AS DIRECTED
     Dates: start: 20151109
  15. CYCLIZINE [Concomitant]
     Active Substance: CYCLIZINE
     Dosage: TAKE ONE TABLET UP TO MAXIMUM OF THREE TIMES DAILY
     Dates: start: 20151229, end: 20160108
  16. PRASUGREL [Concomitant]
     Active Substance: PRASUGREL
     Dosage: TAKE ONE DAILY UNTIL 24/7/16
     Dates: start: 20151109
  17. ATORVASTATIN [Concomitant]
     Active Substance: ATORVASTATIN
     Dates: start: 20151109
  18. CLENIL MODULITE [Concomitant]
     Active Substance: BECLOMETHASONE DIPROPIONATE
     Route: 055
     Dates: start: 20151109
  19. GLYCERYL TRINITRATE [Concomitant]
     Active Substance: NITROGLYCERIN
     Dosage: SPRAY ONE PUFF UNDER THE TONGUE WHEN REQUIRED , AS NECESSARY
     Route: 060
     Dates: start: 20151109
  20. RAMIPRIL. [Suspect]
     Active Substance: RAMIPRIL
     Indication: PRODUCT USED FOR UNKNOWN INDICATION
     Dates: start: 20151109
  21. ASPIRIN. [Concomitant]
     Active Substance: ASPIRIN
     Dates: start: 20151109
  22. BETAMETHASONE. [Concomitant]
     Active Substance: BETAMETHASONE
     Indication: HAIR TEXTURE ABNORMAL
     Dosage: APPLY THINLY TO DRY HAIR IN THE MORNING
     Route: 061
     Dates: start: 20151109

REACTIONS (2)
  - Urticaria [Recovered/Resolved]
  - Rash erythematous [Recovered/Resolved]

NARRATIVE: CASE EVENT DATE: 20160122
